FAERS Safety Report 9450106 (Version 2)
Quarter: 2013Q3

REPORT INFORMATION
  Report Type: Spontaneous
  Country: US (occurrence: US)
  Receive Date: 20130809
  Receipt Date: 20130826
  Transmission Date: 20140515
  Serious: Yes (Other)
  Sender: FDA-Public Use
  Company Number: US-PFIZER INC-2013228782

PATIENT
  Age: 76 Year
  Sex: Male
  Weight: 93 kg

DRUGS (9)
  1. LEVOXYL [Suspect]
     Dosage: 0.05 MG, 1X/DAY
     Route: 048
     Dates: start: 2012
  2. GLIPIZIDE [Interacting]
     Dosage: 10 MG, 2X/DAY
     Route: 048
  3. METFORMIN HCL [Interacting]
     Dosage: 1000 MG, 1X/DAY
     Route: 048
  4. ALEVE [Interacting]
     Dosage: UNK
  5. ACETAMINOPHEN [Concomitant]
     Indication: ARTHRITIS
     Dosage: UNK, 1X/DAY
  6. SIMVASTATIN [Concomitant]
     Dosage: 10 MG, 1X/DAY
  7. RAMIPRIL [Concomitant]
     Dosage: 2.5 MG, 1X/DAY
  8. JANUVIA [Concomitant]
     Dosage: 100 MG, 1X/DAY
  9. BICALUTAMIDE [Concomitant]
     Dosage: 50 MG, 1X/DAY

REACTIONS (3)
  - Prostate cancer [Unknown]
  - Bone cancer [Unknown]
  - Drug interaction [Unknown]
